FAERS Safety Report 9887430 (Version 1)
Quarter: 2014Q1

REPORT INFORMATION
  Report Type: Spontaneous
  Country: US (occurrence: None)
  Receive Date: 20140207
  Receipt Date: 20140207
  Transmission Date: 20141002
  Serious: Yes (Hospitalization)
  Sender: FDA-Public Use
  Company Number: None

PATIENT
  Age: 81 Year
  Sex: Male
  Weight: 72.3 kg

DRUGS (8)
  1. XGEVA [Suspect]
     Indication: METASTASES TO BONE
     Dosage: 120 MG EVERY 28 DAYS SUBCUTANEOUS
     Route: 058
     Dates: start: 20140110
  2. ASPIRIN [Concomitant]
  3. LIPITOR [Concomitant]
  4. COREG [Concomitant]
  5. PROSCAR [Concomitant]
  6. OXYCODONE [Concomitant]
  7. IMODIUM [Concomitant]
  8. FLOMAX [Concomitant]

REACTIONS (4)
  - Diarrhoea [None]
  - Enteritis [None]
  - Hypocalcaemia [None]
  - Electrocardiogram QT prolonged [None]
